FAERS Safety Report 7990833-7 (Version None)
Quarter: 2011Q4

REPORT INFORMATION
  Report Type: 
  Country: None (occurrence: None)
  Receive Date: 20111219
  Receipt Date: 20111211
  Transmission Date: 20120403
  Serious: Yes (Hospitalization)
  Sender: FDA-Public Use
  Company Number: US-US-EMD SERONO, INC.-7100916

PATIENT
  Sex: Female

DRUGS (4)
  1. REBIF [Suspect]
     Indication: MULTIPLE SCLEROSIS
     Route: 058
     Dates: start: 20110916
  2. WELLBUTRIN [Concomitant]
     Indication: ASTHENIA
  3. VITAMIN TAB [Concomitant]
     Indication: ROUTINE HEALTH MAINTENANCE
  4. AMANTADINE HCL [Concomitant]
     Indication: FATIGUE

REACTIONS (2)
  - VOMITING [None]
  - MULTIPLE SCLEROSIS RELAPSE [None]
